FAERS Safety Report 4281584-3 (Version None)
Quarter: 2004Q1

REPORT INFORMATION
  Report Type: 
  Country: None (occurrence: None)
  Receive Date: 20040128
  Receipt Date: 20040114
  Transmission Date: 20041129
  Serious: Yes (Death, Disabling)
  Sender: FDA-Public Use
  Company Number: JP-SHR-04-019722

PATIENT
  Age: 56 Year
  Sex: Male
  Weight: 69 kg

DRUGS (4)
  1. FLUDARA [Suspect]
     Indication: WALDENSTROM'S MACROGLOBULINAEMIA
     Dosage: SEE IMAGE
     Route: 042
     Dates: start: 20000626, end: 20000630
  2. FLUDARA [Suspect]
     Indication: WALDENSTROM'S MACROGLOBULINAEMIA
     Dosage: SEE IMAGE
     Route: 042
     Dates: start: 20000724, end: 20000728
  3. FLUDARA [Suspect]
     Indication: WALDENSTROM'S MACROGLOBULINAEMIA
     Dosage: SEE IMAGE
     Route: 042
     Dates: start: 20000821, end: 20000825
  4. FLUDARA [Suspect]
     Indication: WALDENSTROM'S MACROGLOBULINAEMIA
     Dosage: SEE IMAGE
     Route: 042
     Dates: start: 20000918, end: 20000922

REACTIONS (3)
  - DRUG INEFFECTIVE [None]
  - MYELODYSPLASTIC SYNDROME [None]
  - STEM CELL TRANSPLANT [None]
